FAERS Safety Report 4538397-4 (Version None)
Quarter: 2004Q4

REPORT INFORMATION
  Report Type: 
  Country: None (occurrence: None)
  Receive Date: 20041223
  Receipt Date: 20041223
  Transmission Date: 20050328
  Serious: No
  Sender: FDA-Public Use
  Company Number: None

PATIENT
  Age: 59 Year
  Sex: Female
  Weight: 61.6892 kg

DRUGS (12)
  1. REMICADE [Suspect]
     Indication: RHEUMATOID ARTHRITIS
     Dosage: 185 MG IV (Q 8 WKS)
     Route: 042
     Dates: start: 20040730
  2. REMICADE [Suspect]
     Indication: RHEUMATOID ARTHRITIS
     Dosage: 185 MG IV (Q 8 WKS)
     Route: 042
     Dates: start: 20041001
  3. IMDUR [Concomitant]
  4. TIAZAC [Concomitant]
  5. URSO 250 [Concomitant]
  6. FOSAMAX [Concomitant]
  7. VIT E [Concomitant]
  8. ASPIRIN [Concomitant]
  9. CALCIUM/D [Concomitant]
  10. DARVOCET [Concomitant]
  11. PREDNISONE [Concomitant]
  12. MULTIVITAMIN [Concomitant]

REACTIONS (3)
  - BACK PAIN [None]
  - CHILLS [None]
  - INFUSION RELATED REACTION [None]
